FAERS Safety Report 7880175-2 (Version None)
Quarter: 2011Q4

REPORT INFORMATION
  Report Type: 
  Country: None (occurrence: None)
  Receive Date: 20111101
  Receipt Date: 20111021
  Transmission Date: 20120403
  Serious: Yes (Hospitalization, Other)
  Sender: FDA-Public Use
  Company Number: US-BAYER-2011-024241

PATIENT
  Age: 17 Year
  Sex: Female
  Weight: 47.619 kg

DRUGS (4)
  1. PREVACID [Concomitant]
     Indication: GASTROOESOPHAGEAL REFLUX DISEASE
     Dosage: 30 MG, QD
     Dates: start: 20010101, end: 20090101
  2. YAZ [Suspect]
     Dosage: UNK
     Dates: start: 20061001, end: 20091101
  3. ANTIEMETICS AND ANTINAUSEANTS [Concomitant]
     Dosage: UNK
     Dates: start: 20040201
  4. YASMIN [Suspect]
     Indication: ORAL CONTRACEPTION
     Dosage: UNK
     Dates: start: 20030901, end: 20060901

REACTIONS (3)
  - GALLBLADDER DISORDER [None]
  - BILIARY DYSKINESIA [None]
  - CHOLECYSTITIS CHRONIC [None]
